FAERS Safety Report 15805605 (Version 1)
Quarter: 2019Q1

REPORT INFORMATION
  Report Type: Report from Study
  Country: GB (occurrence: GB)
  Receive Date: 20190110
  Receipt Date: 20190110
  Transmission Date: 20190417
  Serious: Yes (Hospitalization, Disabling)
  Sender: FDA-Public Use
  Company Number: GB-CELLTRION INC.-2018GB025057

PATIENT

DRUGS (3)
  1. TRUXIMA [Suspect]
     Active Substance: RITUXIMAB-ABBS
     Dosage: UNK
     Route: 065
  2. TRUXIMA [Suspect]
     Active Substance: RITUXIMAB-ABBS
     Indication: DIFFUSE LARGE B-CELL LYMPHOMA
     Dosage: UNK
     Route: 065
  3. TRUXIMA [Suspect]
     Active Substance: RITUXIMAB-ABBS
     Dosage: UNK
     Route: 065

REACTIONS (11)
  - Seizure [Not Recovered/Not Resolved]
  - Acute psychosis [Not Recovered/Not Resolved]
  - Disorientation [Recovered/Resolved]
  - Confusional state [Recovered/Resolved]
  - Infection [Not Recovered/Not Resolved]
  - Loss of consciousness [Not Recovered/Not Resolved]
  - JC virus infection [Not Recovered/Not Resolved]
  - Progressive multifocal leukoencephalopathy [Not Recovered/Not Resolved]
  - Pyrexia [Recovered/Resolved]
  - Limb discomfort [Not Recovered/Not Resolved]
  - Syncope [Recovered/Resolved]

NARRATIVE: CASE EVENT DATE: 20180104
